FAERS Safety Report 6772542-5 (Version None)
Quarter: 2010Q2

REPORT INFORMATION
  Report Type: 
  Country: None (occurrence: None)
  Receive Date: 20100616
  Receipt Date: 20091215
  Transmission Date: 20101027
  Serious: No
  Sender: FDA-Public Use
  Company Number: US-ASTRAZENECA-2009SE32216

PATIENT
  Sex: Female

DRUGS (3)
  1. PULMICORT [Suspect]
     Indication: ASTHMA
     Route: 055
     Dates: start: 20060101
  2. STEROIDS [Concomitant]
  3. ASMANEX TWISTHALER [Concomitant]
     Indication: ASTHMA

REACTIONS (1)
  - DRUG EFFECT DELAYED [None]
